FAERS Safety Report 9224672 (Version 1)
Quarter: 2013Q2

REPORT INFORMATION
  Report Type: Spontaneous
  Country: US (occurrence: US)
  Receive Date: 20130411
  Receipt Date: 20130411
  Transmission Date: 20140414
  Serious: No
  Sender: FDA-Public Use
  Company Number: US-BAYER-2013-044930

PATIENT
  Age: 78 Year
  Sex: Female
  Weight: 68.03 kg

DRUGS (8)
  1. ALEVE CAPLET [Suspect]
     Indication: BACK PAIN
     Dosage: 1 DF, BID
     Route: 048
     Dates: start: 201211
  2. BAYER ASPIRIN REGIMEN ADULT LOW STRENGTH [Concomitant]
     Dosage: UNK
  3. CALCIUM [Concomitant]
  4. CRESTOR [Concomitant]
  5. ESCITALOPRAM [Concomitant]
  6. CENTRUM [Concomitant]
  7. ALENDRONATE SODIUM [Concomitant]
  8. ZETIA [Concomitant]

REACTIONS (1)
  - Incorrect drug administration duration [None]
